FAERS Safety Report 9675643 (Version 1)
Quarter: 2013Q4

REPORT INFORMATION
  Report Type: Spontaneous
  Country: US (occurrence: US)
  Receive Date: 20131107
  Receipt Date: 20131107
  Transmission Date: 20140711
  Serious: Yes (Life-Threatening, Other)
  Sender: FDA-Public Use
  Company Number: US-ELI_LILLY_AND_COMPANY-US201310010466

PATIENT
  Age: 31 Year
  Sex: Female

DRUGS (6)
  1. OLANZAPINE [Suspect]
     Indication: PRODUCT USED FOR UNKNOWN INDICATION
  2. HALOPERIDOL [Suspect]
     Indication: AGITATION
     Dosage: 5 MG, OTHER
     Route: 042
  3. METHADONE [Suspect]
     Indication: BACK PAIN
     Dosage: 30 MG, OTHER
     Route: 042
  4. METHADONE [Suspect]
     Indication: ABDOMINAL PAIN
     Dosage: 5 MG, QID
     Route: 048
  5. ONDANSETRON [Suspect]
     Indication: NAUSEA
  6. HYDROMORPHONE [Concomitant]

REACTIONS (2)
  - Torsade de pointes [Unknown]
  - Delirium [Unknown]
